FAERS Safety Report 25885198 (Version 1)
Quarter: 2025Q4

REPORT INFORMATION
  Report Type: Spontaneous
  Country: US (occurrence: None)
  Receive Date: 20251004
  Receipt Date: 20251004
  Transmission Date: 20260118
  Serious: Yes (Hospitalization)
  Sender: FDA-CTU
  Company Number: None

PATIENT
  Sex: Female

DRUGS (4)
  1. LENALIDOMIDE [Suspect]
     Active Substance: LENALIDOMIDE
     Indication: Plasma cell myeloma
     Route: 048
     Dates: start: 20250819
  2. CALCIUM TAB 500MG [Concomitant]
  3. IRON TAB 325MG [Concomitant]
  4. KP VITAMIN D [Concomitant]

REACTIONS (1)
  - Large intestine infection [None]
